FAERS Safety Report 25541313 (Version 6)
Quarter: 2025Q4

REPORT INFORMATION
  Report Type: Report from Study
  Country: US (occurrence: US)
  Receive Date: 20250711
  Receipt Date: 20251010
  Transmission Date: 20260118
  Serious: Yes (Hospitalization)
  Sender: MALLINCKRODT
  Company Number: US-MALLINCKRODT-MNK202503785

PATIENT
  Age: 71 Year
  Sex: Male
  Weight: 153 kg

DRUGS (4)
  1. CORTICOTROPIN [Suspect]
     Active Substance: CORTICOTROPIN
     Indication: Nephrotic syndrome
     Route: 058
     Dates: start: 20250613, end: 20250704
  2. CORTICOTROPIN [Suspect]
     Active Substance: CORTICOTROPIN
     Indication: Nephrotic syndrome
     Route: 058
     Dates: start: 2025
  3. TORSEMIDE [Concomitant]
     Active Substance: TORSEMIDE
     Dosage: UNKNOWN
  4. TORSEMIDE [Concomitant]
     Active Substance: TORSEMIDE
     Dosage: UNKNOWN, INCREASED

REACTIONS (10)
  - Blood pressure decreased [Unknown]
  - Dyspnoea [Unknown]
  - Platelet count increased [Recovering/Resolving]
  - Blood magnesium decreased [Unknown]
  - Swelling [Unknown]
  - Joint swelling [Unknown]
  - Peripheral swelling [Recovering/Resolving]
  - Blood potassium decreased [Recovering/Resolving]
  - Injection site bruising [Unknown]
  - Muscular weakness [Not Recovered/Not Resolved]

NARRATIVE: CASE EVENT DATE: 20250101
